FAERS Safety Report 6979114-8 (Version None)
Quarter: 2010Q3

REPORT INFORMATION
  Report Type: 
  Country: None (occurrence: None)
  Receive Date: 20100913
  Receipt Date: 20100901
  Transmission Date: 20110219
  Serious: Yes (Other)
  Sender: FDA-Public Use
  Company Number: PHHY2010NL57893

PATIENT
  Sex: Male

DRUGS (10)
  1. ZOMETA [Suspect]
     Dosage: 4 MG/ 5 ML, 20MIN
     Route: 042
     Dates: start: 20100723
  2. ZOMETA [Suspect]
     Dosage: 4 MG/ 5 ML
     Route: 042
     Dates: start: 20100811
  3. ZOMETA [Suspect]
     Dosage: 4 MG/ 5 ML
     Route: 042
     Dates: start: 20100901
  4. DICLOFENAC [Concomitant]
  5. PANADOL [Concomitant]
  6. PANTOPRAZOLE SODIUM [Concomitant]
  7. METOPROLOL TARTRATE [Concomitant]
  8. SINAPRIL [Concomitant]
  9. MOVICOLON [Concomitant]
  10. SPIRIVA [Concomitant]

REACTIONS (5)
  - BONE PAIN [None]
  - METASTASES TO BONE [None]
  - METASTASES TO MUSCLE [None]
  - PAIN [None]
  - PAIN IN JAW [None]
